FAERS Safety Report 20366090 (Version 1)
Quarter: 2022Q1

REPORT INFORMATION
  Report Type: Other
  Country: US (occurrence: US)
  Receive Date: 20220123
  Receipt Date: 20220123
  Transmission Date: 20220423
  Serious: No
  Sender: FDA-Public Use
  Company Number: US-ACORDA-ACO_168756_2021

PATIENT
  Age: 59 Year
  Sex: Female

DRUGS (1)
  1. AMPYRA [Suspect]
     Active Substance: DALFAMPRIDINE
     Indication: Product used for unknown indication
     Dosage: 10 MILLIGRAM, BID
     Route: 048
     Dates: start: 20210420

REACTIONS (10)
  - Weight decreased [Unknown]
  - Feeling abnormal [Unknown]
  - Feeding disorder [Recovering/Resolving]
  - Neuralgia [Unknown]
  - Condition aggravated [Unknown]
  - Hot flush [Unknown]
  - Insomnia [Unknown]
  - Nausea [Recovering/Resolving]
  - Vomiting [Recovering/Resolving]
  - Paraesthesia [Unknown]

NARRATIVE: CASE EVENT DATE: 20210420
